FAERS Safety Report 20113683 (Version 2)
Quarter: 2022Q1

REPORT INFORMATION
  Report Type: Spontaneous
  Country: US (occurrence: US)
  Receive Date: 20211125
  Receipt Date: 20220201
  Transmission Date: 20220423
  Serious: Yes (Other)
  Sender: FDA-Public Use
  Company Number: US-BRISTOL-MYERS SQUIBB COMPANY-BMS-2021-125933

PATIENT
  Age: 77 Year
  Sex: Female

DRUGS (11)
  1. ELIQUIS [Suspect]
     Active Substance: APIXABAN
     Indication: Cerebrovascular accident prophylaxis
     Dosage: 5 MILLIGRAM, BID
     Route: 048
     Dates: start: 202011, end: 202109
  2. TUMS [Concomitant]
     Active Substance: CALCIUM CARBONATE
     Indication: Dyspepsia
     Dosage: 1000 MILLIGRAM, AFTER EACH MEAL AND AT BEDTIME, AS NEEDED
     Route: 048
  3. KEFLEX [Concomitant]
     Active Substance: CEPHALEXIN
     Indication: Sinusitis
     Dosage: 500 MILLIGRAM, BID
     Route: 048
  4. ESTRACE [Concomitant]
     Active Substance: ESTRADIOL
     Indication: Product used for unknown indication
     Dosage: 0.5 MILLIGRAM, BID
     Route: 048
  5. PEPCID [Concomitant]
     Active Substance: FAMOTIDINE
     Indication: Product used for unknown indication
     Dosage: 20 MILLIGRAM, QD
     Route: 048
  6. PROZAC [Concomitant]
     Active Substance: FLUOXETINE HYDROCHLORIDE
     Indication: Product used for unknown indication
     Dosage: 10 MILLIGRAM, QD
     Route: 048
  7. LASIX [Concomitant]
     Active Substance: FUROSEMIDE
     Indication: Peripheral swelling
     Dosage: 20 MILLIGRAM, QD AS NEEDED
     Route: 048
  8. SYNTHROID [Concomitant]
     Active Substance: LEVOTHYROXINE SODIUM
     Indication: Product used for unknown indication
     Dosage: 75 MICROGRAM, QD AT 6 AM
     Route: 048
  9. MICRO-K [Concomitant]
     Active Substance: POTASSIUM CHLORIDE
     Indication: Product used for unknown indication
     Dosage: 10 MILLIEQUIVALENT, QD WITH BREAKFAST
     Route: 048
  10. ALDACTONE [Concomitant]
     Active Substance: SPIRONOLACTONE
     Indication: Product used for unknown indication
     Dosage: 25 MILLIGRAM, QD
     Route: 048
  11. ULTRAM [Concomitant]
     Active Substance: TRAMADOL HYDROCHLORIDE
     Indication: Product used for unknown indication
     Dosage: 50 MILLIGRAM, BID AS NEEDED
     Route: 048

REACTIONS (2)
  - Haemorrhage [Unknown]
  - Vein rupture [Unknown]
